FAERS Safety Report 9078263 (Version 1)
Quarter: 2013Q1

REPORT INFORMATION
  Report Type: Report from Study
  Country: US (occurrence: US)
  Receive Date: 20130130
  Receipt Date: 20130130
  Transmission Date: 20140127
  Serious: No
  Sender: FDA-Public Use
  Company Number: US-ABBOTT-12P-163-0972846-00

PATIENT
  Sex: Female
  Weight: 71.73 kg

DRUGS (1)
  1. HUMIRA 40 MG/0.8 ML PEN [Suspect]
     Indication: PROGRESSIVE SUPRANUCLEAR PALSY
     Route: 058
     Dates: start: 2008

REACTIONS (2)
  - Off label use [Not Recovered/Not Resolved]
  - Injection site erythema [Recovered/Resolved]
